FAERS Safety Report 17762491 (Version 2)
Quarter: 2020Q2

REPORT INFORMATION
  Report Type: Report from Study
  Country: FR (occurrence: FR)
  Receive Date: 20200508
  Receipt Date: 20200518
  Transmission Date: 20200714
  Serious: Yes (Hospitalization)
  Sender: FDA-Public Use
  Company Number: FR-PFIZER INC-2020178327

PATIENT
  Age: 75 Year
  Sex: Female

DRUGS (5)
  1. AVELUMAB [Suspect]
     Active Substance: AVELUMAB
     Dosage: 520 MG, DAILY
     Dates: start: 20200410
  2. CISPLATIN. [Suspect]
     Active Substance: CISPLATIN
     Dosage: 110 MG, DAILY
     Dates: start: 20200410
  3. ZOLOFT [Concomitant]
     Active Substance: SERTRALINE HYDROCHLORIDE
     Dosage: 50 MG, 1X/DAY
  4. GEMCITABINE HYDROCHLORIDE. [Suspect]
     Active Substance: GEMCITABINE HYDROCHLORIDE
     Dosage: 1510 MG, DAILY
     Dates: start: 20200410
  5. ULTIBRO BREEZHALER [Concomitant]
     Active Substance: GLYCOPYRRONIUM\INDACATEROL
     Dosage: 1 DF, 1X/DAY

REACTIONS (2)
  - Acute pulmonary oedema [Recovered/Resolved]
  - Cardiac failure [Recovered/Resolved]

NARRATIVE: CASE EVENT DATE: 20200410
